FAERS Safety Report 5786033-1 (Version None)
Quarter: 2008Q2

REPORT INFORMATION
  Report Type: 
  Country: None (occurrence: None)
  Receive Date: 20080619
  Receipt Date: 20080606
  Transmission Date: 20081010
  Serious: Yes (Death)
  Sender: FDA-Public Use
  Company Number: 2008001322

PATIENT
  Age: 77 Year
  Sex: Male

DRUGS (4)
  1. ERLOTINIB (ERLOTINIB) (TABLET) (ERLOTINIB) [Suspect]
     Indication: COLORECTAL CANCER
     Dosage: 150 MG, QD, ORAL
     Route: 048
  2. BEVACIZUMAB (INJECTION FOR INFUSION) [Suspect]
     Indication: COLORECTAL CANCER
     Dosage: 375 MG, Q2W, INTRAVENOUS; 575 MG, Q3W, INTRAVENOUS
     Route: 042
     Dates: end: 20070530
  3. BEVACIZUMAB (INJECTION FOR INFUSION) [Suspect]
     Indication: COLORECTAL CANCER
     Dosage: 375 MG, Q2W, INTRAVENOUS; 575 MG, Q3W, INTRAVENOUS
     Route: 042
     Dates: start: 20070320
  4. OXALIPLATIN (OXALIPLATIN) (INJECTION FOR INFUSION) [Suspect]
     Indication: COLORECTAL CANCER
     Dosage: 180 MG, Q2W, INTRAVENOUS
     Route: 042
     Dates: end: 20070530

REACTIONS (1)
  - SUDDEN DEATH [None]
